FAERS Safety Report 12143266 (Version 3)
Quarter: 2016Q1

REPORT INFORMATION
  Report Type: Spontaneous
  Country: PL (occurrence: PL)
  Receive Date: 20160304
  Receipt Date: 20160316
  Transmission Date: 20160526
  Serious: Yes (Other)
  Sender: FDA-Public Use
  Company Number: PL-ROCHE-1720883

PATIENT
  Age: 53 Year
  Sex: Female

DRUGS (1)
  1. HERCEPTIN [Suspect]
     Active Substance: TRASTUZUMAB
     Indication: HER-2 POSITIVE BREAST CANCER
     Dosage: 17 ADMINISTRATIONS.
     Route: 065
     Dates: start: 201312, end: 20141208

REACTIONS (4)
  - Metastases to liver [Unknown]
  - Gait disturbance [Unknown]
  - Breast cancer recurrent [Unknown]
  - Metastases to bone [Unknown]

NARRATIVE: CASE EVENT DATE: 201602
